FAERS Safety Report 8245025-3 (Version None)
Quarter: 2012Q1

REPORT INFORMATION
  Report Type: 
  Country: None (occurrence: None)
  Receive Date: 20120329
  Receipt Date: 20120315
  Transmission Date: 20120608
  Serious: Yes (Hospitalization)
  Sender: FDA-Public Use
  Company Number: GB-PFIZER INC-2012075629

PATIENT
  Age: 71 Year
  Sex: Female

DRUGS (5)
  1. CLOPIDOGREL [Concomitant]
     Dosage: UNK
     Dates: start: 20110824, end: 20110824
  2. SPIRONOLACTONE [Suspect]
     Dosage: UNK
  3. RAMIPRIL [Suspect]
     Dosage: UNK
  4. BUMETANIDE [Suspect]
     Dosage: UNK
  5. ACETYLSALICYLIC ACID [Concomitant]

REACTIONS (1)
  - RENAL FAILURE ACUTE [None]
